FAERS Safety Report 24743086 (Version 1)
Quarter: 2024Q4

REPORT INFORMATION
  Report Type: Report from Study
  Country: US (occurrence: US)
  Receive Date: 20241217
  Receipt Date: 20241217
  Transmission Date: 20250114
  Serious: Yes (Death, Hospitalization, Other)
  Sender: TAKEDA
  Company Number: US-TAKEDA-2024TUS074593

PATIENT
  Age: 44 Year
  Sex: Male

DRUGS (2)
  1. FRUQUINTINIB [Suspect]
     Active Substance: FRUQUINTINIB
     Indication: Rectal cancer
     Dosage: 5 MILLIGRAM
  2. FRUQUINTINIB [Suspect]
     Active Substance: FRUQUINTINIB
     Dosage: 5 MILLIGRAM

REACTIONS (10)
  - Death [Fatal]
  - Rectal haemorrhage [Unknown]
  - Dysphagia [Not Recovered/Not Resolved]
  - Oral pruritus [Not Recovered/Not Resolved]
  - Stoma site haemorrhage [Unknown]
  - Movement disorder [Unknown]
  - Dry skin [Recovering/Resolving]
  - Oropharyngeal pain [Recovering/Resolving]
  - Stomatitis [Not Recovered/Not Resolved]
  - Asthenia [Unknown]

NARRATIVE: CASE EVENT DATE: 20241011
